FAERS Safety Report 25766788 (Version 1)
Quarter: 2025Q3

REPORT INFORMATION
  Report Type: Spontaneous
  Country: CN (occurrence: CN)
  Receive Date: 20250905
  Receipt Date: 20250905
  Transmission Date: 20251020
  Serious: Yes (Life-Threatening, Other)
  Sender: BAYER HEALTHCARE PHARMACEUTICALS INC.
  Company Number: CN-BAYER-2025A117793

PATIENT
  Age: 74 Year
  Sex: Female
  Weight: 57 kg

DRUGS (4)
  1. ULTRAVIST [Suspect]
     Active Substance: IOPROMIDE
     Indication: Computerised tomogram intestine
     Route: 042
     Dates: start: 20250814, end: 20250814
  2. ULTRAVIST [Suspect]
     Active Substance: IOPROMIDE
     Indication: Computerised tomogram abdomen
  3. ULTRAVIST [Suspect]
     Active Substance: IOPROMIDE
     Indication: Nephrolithiasis
  4. ULTRAVIST [Suspect]
     Active Substance: IOPROMIDE
     Indication: Ureterolithiasis

REACTIONS (7)
  - Anaphylactic shock [Recovering/Resolving]
  - Dyspnoea [Recovering/Resolving]
  - Tachypnoea [Recovering/Resolving]
  - Chest discomfort [Recovering/Resolving]
  - Asthenia [Recovering/Resolving]
  - Blood pressure decreased [None]
  - Heart rate increased [None]

NARRATIVE: CASE EVENT DATE: 20250814
